FAERS Safety Report 11315587 (Version 2)
Quarter: 2015Q3

REPORT INFORMATION
  Report Type: Report from Study
  Country: US (occurrence: US)
  Receive Date: 20150728
  Receipt Date: 20150821
  Transmission Date: 20151125
  Serious: Yes (Other)
  Sender: FDA-Public Use
  Company Number: US-AMGEN-USASP2015073578

PATIENT
  Age: 75 Year
  Sex: Male

DRUGS (2)
  1. VIDAZA [Suspect]
     Active Substance: AZACITIDINE
     Indication: PRODUCT USED FOR UNKNOWN INDICATION
     Dosage: UNK
     Route: 065
  2. NPLATE [Suspect]
     Active Substance: ROMIPLOSTIM
     Indication: IMMUNE THROMBOCYTOPENIC PURPURA
     Dosage: 10 MUG/KG, QWK
     Route: 065
     Dates: start: 20100101

REACTIONS (8)
  - Cytogenetic abnormality [Unknown]
  - Contusion [Unknown]
  - Platelet count abnormal [Unknown]
  - Drug effect incomplete [Unknown]
  - Drug ineffective [Unknown]
  - Platelet morphology abnormal [Unknown]
  - Epistaxis [Unknown]
  - Bone marrow disorder [Unknown]
